FAERS Safety Report 10876229 (Version 1)
Quarter: 2015Q1

REPORT INFORMATION
  Report Type: Spontaneous
  Country: US (occurrence: US)
  Receive Date: 20150227
  Receipt Date: 20150227
  Transmission Date: 20150721
  Serious: No
  Sender: FDA-Public Use
  Company Number: US-AMGEN-USASP2014026605

PATIENT
  Age: 63 Year
  Sex: Female

DRUGS (1)
  1. ENBREL [Suspect]
     Active Substance: ETANERCEPT
     Indication: RHEUMATOID ARTHRITIS
     Dosage: 50 MG WEEKLY
     Route: 065
     Dates: start: 20121221, end: 20140312

REACTIONS (10)
  - Oropharyngeal pain [Not Recovered/Not Resolved]
  - Sensation of foreign body [Not Recovered/Not Resolved]
  - Condition aggravated [Not Recovered/Not Resolved]
  - Pain in extremity [Not Recovered/Not Resolved]
  - Lower respiratory tract infection [Recovered/Resolved]
  - Peripheral swelling [Not Recovered/Not Resolved]
  - Cough [Recovered/Resolved]
  - Productive cough [Recovered/Resolved]
  - Sinusitis [Not Recovered/Not Resolved]
  - Laryngitis [Recovered/Resolved]

NARRATIVE: CASE EVENT DATE: 2013
